FAERS Safety Report 8584556-3 (Version None)
Quarter: 2012Q3

REPORT INFORMATION
  Report Type: 
  Country: None (occurrence: None)
  Receive Date: 20120730
  Receipt Date: 20120713
  Transmission Date: 20120928
  Serious: Yes (Hospitalization)
  Sender: FDA-Public Use
  Company Number: INT_00093_2012

PATIENT
  Age: 91 Year
  Sex: Female

DRUGS (2)
  1. VANCOMYCIN [Suspect]
  2. IMIPENEM [Suspect]
     Indication: PSEUDOMONAS INFECTION
     Dosage: (DF)

REACTIONS (3)
  - DELIRIUM [None]
  - LETHARGY [None]
  - COMA [None]
